FAERS Safety Report 5131890-5 (Version None)
Quarter: 2006Q4

REPORT INFORMATION
  Report Type: 
  Country: None (occurrence: None)
  Receive Date: 20061016
  Receipt Date: 20061004
  Transmission Date: 20070319
  Serious: Yes (Death)
  Sender: FDA-Public Use
  Company Number: 2006093730

PATIENT
  Age: 58 Year
  Sex: Female
  Weight: 81.6475 kg

DRUGS (3)
  1. BEXTRA [Suspect]
     Indication: ARTHRITIS
     Dosage: (20 MG), ORAL
     Route: 048
  2. BEXTRA [Suspect]
     Indication: INFLAMMATION
     Dosage: (20 MG), ORAL
     Route: 048
  3. BEXTRA [Suspect]
     Indication: PAIN
     Dosage: (20 MG), ORAL
     Route: 048

REACTIONS (1)
  - CEREBROVASCULAR ACCIDENT [None]
